FAERS Safety Report 9842903 (Version 1)
Quarter: 2013Q4

REPORT INFORMATION
  Report Type: Spontaneous
  Country: BR (occurrence: None)
  Receive Date: 20131211
  Receipt Date: 20131211
  Transmission Date: 20140711
  Serious: Yes (Other)
  Sender: FDA-Public Use
  Company Number: PRA1-2011-00019

PATIENT
  Age: 14 Year
  Sex: Male
  Weight: 23 kg

DRUGS (3)
  1. ELAPRASE [Suspect]
     Indication: MUCOPOLYSACCHARIDOSIS II
     Dosage: 2  AMPOULES, UNKNOWN ,  IV DRIP
     Dates: start: 2007
  2. CARBAMAZEPINE (CARBAMAZEPINE) [Concomitant]
  3. CARBAMAZEPINE (CARBAMAZEPINE) [Concomitant]

REACTIONS (1)
  - Convulsion [None]
